FAERS Safety Report 4962078-6 (Version None)
Quarter: 2006Q2

REPORT INFORMATION
  Report Type: 
  Country: None (occurrence: None)
  Receive Date: 20060404
  Receipt Date: 20050922
  Transmission Date: 20061013
  Serious: Yes (Death, Disabling)
  Sender: FDA-Public Use
  Company Number: US-MERCK-0509USA03463

PATIENT
  Age: 51 Year
  Sex: Female
  Weight: 135 kg

DRUGS (2)
  1. VIOXX [Suspect]
     Indication: ARTHRITIS
     Route: 048
     Dates: start: 20000417, end: 20010916
  2. TYLENOL (CAPLET) [Concomitant]
     Route: 065

REACTIONS (7)
  - BACK PAIN [None]
  - CHEST PAIN [None]
  - EAR DISORDER [None]
  - INJURY [None]
  - MYOCARDIAL INFARCTION [None]
  - PLANTAR FASCIITIS [None]
  - SURGERY [None]
